FAERS Safety Report 6437606-4 (Version None)
Quarter: 2009Q4

REPORT INFORMATION
  Report Type: 
  Country: None (occurrence: None)
  Receive Date: 20091106
  Receipt Date: 20090820
  Transmission Date: 20100525
  Serious: Yes (Other)
  Sender: FDA-Public Use
  Company Number: WAES 0908USA04047

PATIENT

DRUGS (1)
  1. JANUMET [Suspect]

REACTIONS (1)
  - PANCREATITIS [None]
